FAERS Safety Report 13504753 (Version 1)
Quarter: 2017Q2

REPORT INFORMATION
  Report Type: Spontaneous
  Country: US (occurrence: US)
  Receive Date: 20170502
  Receipt Date: 20170502
  Transmission Date: 20170830
  Serious: No
  Sender: FDA-Public Use
  Company Number: US-IMPAX LABORATORIES, INC-2017-IPXL-00144

PATIENT
  Sex: Male

DRUGS (2)
  1. RYTARY [Suspect]
     Active Substance: CARBIDOPA\LEVODOPA
     Indication: PARKINSON^S DISEASE
     Dosage: 61.25/245MG, FOUR CAPSULES AT 7AM, 11AM, 3PM AND 7PM
     Route: 048
     Dates: start: 20151017
  2. RYTARY [Suspect]
     Active Substance: CARBIDOPA\LEVODOPA
     Dosage: 61.25/245MG, 1 CAPSULE  AT 7AM, 7:45AM, 10AM, 10:45AM, 1PM, 1:45PM, 4PM, 4:45PM, 10PM, 10:45PM
     Route: 048

REACTIONS (1)
  - Prescribed overdose [Unknown]
